FAERS Safety Report 4493428-5 (Version None)
Quarter: 2004Q4

REPORT INFORMATION
  Report Type: 
  Country: None (occurrence: None)
  Receive Date: 20041102
  Receipt Date: 20041025
  Transmission Date: 20050328
  Serious: Yes (Death)
  Sender: FDA-Public Use
  Company Number: 2004UW22101

PATIENT
  Sex: Male

DRUGS (1)
  1. DIPRIVAN [Suspect]
     Indication: CEREBRAL HAEMORRHAGE
     Dosage: 10 MG/ML IV
     Route: 042

REACTIONS (3)
  - ARRHYTHMIA [None]
  - BLOOD TRIGLYCERIDES INCREASED [None]
  - BRADYCARDIA [None]
